FAERS Safety Report 5076143-9 (Version None)
Quarter: 2006Q3

REPORT INFORMATION
  Report Type: 
  Country: None (occurrence: None)
  Receive Date: 20060804
  Receipt Date: 20060724
  Transmission Date: 20061208
  Serious: Yes (Other)
  Sender: FDA-Public Use
  Company Number: 220002M06FRA

PATIENT
  Age: 16 Year
  Sex: Male
  Weight: 83.3 kg

DRUGS (1)
  1. SAIZEN [Suspect]
     Indication: GROWTH HORMONE DEFICIENCY
     Dosage: 1.6 MG, 1 IN 1 DAYS,
     Dates: start: 20050730, end: 20060228

REACTIONS (1)
  - CARPAL TUNNEL SYNDROME [None]
